FAERS Safety Report 12014845 (Version 1)
Quarter: 2016Q1

REPORT INFORMATION
  Report Type: Spontaneous
  Country: FR (occurrence: FR)
  Receive Date: 20160205
  Receipt Date: 20160205
  Transmission Date: 20160526
  Serious: Yes (Life-Threatening, Hospitalization)
  Sender: FDA-Public Use
  Company Number: FR-JNJFOC-20160201873

PATIENT
  Age: 85 Year
  Sex: Male

DRUGS (10)
  1. KARDEGIC [Suspect]
     Active Substance: ASPIRIN LYSINE
     Indication: CORONARY ARTERY DISEASE
     Route: 048
     Dates: start: 20120301
  2. PLAVIX [Suspect]
     Active Substance: CLOPIDOGREL BISULFATE
     Indication: CORONARY ARTERY DISEASE
     Route: 048
     Dates: start: 20120301
  3. PRAVASTATIN [Concomitant]
     Active Substance: PRAVASTATIN\PRAVASTATIN SODIUM
     Route: 065
  4. XARELTO [Suspect]
     Active Substance: RIVAROXABAN
     Indication: THROMBOSIS PROPHYLAXIS
     Route: 048
     Dates: start: 20151204, end: 20151218
  5. XARELTO [Suspect]
     Active Substance: RIVAROXABAN
     Indication: ARTHROPATHY
     Route: 048
     Dates: start: 20151204, end: 20151218
  6. ZESTRIL [Concomitant]
     Active Substance: LISINOPRIL
     Route: 065
  7. XATRAL [Concomitant]
     Active Substance: ALFUZOSIN
     Route: 065
  8. FEBUXOSTAT. [Concomitant]
     Active Substance: FEBUXOSTAT
     Route: 065
  9. TEMERIT [Concomitant]
     Active Substance: NEBIVOLOL
     Route: 065
  10. LERCAN [Concomitant]
     Active Substance: LERCANIDIPINE
     Route: 065

REACTIONS (3)
  - Melaena [Recovered/Resolved]
  - Hypovolaemic shock [Recovered/Resolved]
  - Anaemia [Recovered/Resolved]

NARRATIVE: CASE EVENT DATE: 20151218
